FAERS Safety Report 8376326-6 (Version None)
Quarter: 2012Q2

REPORT INFORMATION
  Report Type: 
  Country: None (occurrence: None)
  Receive Date: 20120517
  Receipt Date: 20120503
  Transmission Date: 20120825
  Serious: Yes (Hospitalization, Other)
  Sender: FDA-Public Use
  Company Number: NGX_01078_2012

PATIENT
  Sex: Female
  Weight: 82 kg

DRUGS (10)
  1. NITROFURANTOIN [Concomitant]
  2. HUMULIN R [Concomitant]
  3. PRICORON [Concomitant]
  4. QUTENZA [Suspect]
     Indication: DIABETIC NEUROPATHY
     Dosage: (DF [BIMONTHLY APPLICATION] TOPICAL)
     Route: 061
     Dates: start: 20120209, end: 20120209
  5. LANTUS [Concomitant]
  6. ASPIRIN [Concomitant]
  7. INDAP [Concomitant]
  8. KALNORMIN [Concomitant]
  9. AMPRILAN [Concomitant]
  10. VASOCARDIN [Concomitant]

REACTIONS (12)
  - HYPERTENSION [None]
  - CONDITION AGGRAVATED [None]
  - CHEST PAIN [None]
  - BLOOD GLUCOSE INCREASED [None]
  - RENAL CYST [None]
  - HYPOKALAEMIA [None]
  - OSTEOARTHRITIS [None]
  - BLOOD CALCIUM DECREASED [None]
  - PHLEBOLITH [None]
  - HEPATIC STEATOSIS [None]
  - URINARY TRACT INFECTION [None]
  - FOREIGN BODY [None]
